FAERS Safety Report 12697168 (Version 1)
Quarter: 2016Q3

REPORT INFORMATION
  Report Type: Spontaneous
  Country: US (occurrence: US)
  Receive Date: 20160830
  Receipt Date: 20160830
  Transmission Date: 20161109
  Serious: No
  Sender: FDA-Public Use
  Company Number: US-JNJFOC-20160621618

PATIENT
  Sex: Male

DRUGS (1)
  1. REMICADE [Suspect]
     Active Substance: INFLIXIMAB
     Indication: IRRITABLE BOWEL SYNDROME
     Route: 042
     Dates: start: 20160621

REACTIONS (4)
  - Infusion related reaction [Unknown]
  - Asthenia [Unknown]
  - Frequent bowel movements [Unknown]
  - Vomiting [Unknown]

NARRATIVE: CASE EVENT DATE: 20160621
